FAERS Safety Report 5702765-5 (Version None)
Quarter: 2008Q2

REPORT INFORMATION
  Report Type: 
  Country: None (occurrence: None)
  Receive Date: 20080411
  Receipt Date: 20080403
  Transmission Date: 20081010
  Serious: Yes (Other)
  Sender: FDA-Public Use
  Company Number: B0516017A

PATIENT

DRUGS (5)
  1. BLINDED TRIAL MEDICATION [Suspect]
     Indication: HIV INFECTION
     Route: 048
  2. COMBIVIR [Suspect]
     Indication: HIV INFECTION
     Dosage: 1TAB TWICE PER DAY
     Route: 048
  3. EFAVIRENZ [Suspect]
     Indication: HIV INFECTION
     Dosage: 600MG PER DAY
     Route: 048
  4. RIFAMPICIN [Concomitant]
     Dates: end: 20061013
  5. ISONIAZID [Concomitant]
     Dates: end: 20061013

REACTIONS (5)
  - HEPATITIS [None]
  - HEPATOSPLENOMEGALY [None]
  - JAUNDICE [None]
  - PYREXIA [None]
  - VOMITING [None]
